FAERS Safety Report 23626147 (Version 1)
Quarter: 2024Q1

REPORT INFORMATION
  Report Type: Spontaneous
  Country: US (occurrence: None)
  Receive Date: 20240312
  Receipt Date: 20240312
  Transmission Date: 20240409
  Serious: Yes (Hospitalization)
  Sender: FDA-Public Use
  Company Number: None

PATIENT
  Age: 53 Year
  Sex: Female

DRUGS (2)
  1. AMBRISENTAN [Suspect]
     Active Substance: AMBRISENTAN
     Indication: Pulmonary hypertension
     Dosage: FREQUENCY : DAILY;?
     Route: 048
     Dates: start: 20231205, end: 20240212
  2. SILDENAFIL [Suspect]
     Active Substance: SILDENAFIL

REACTIONS (8)
  - Oedema [None]
  - Dyspnoea [None]
  - Therapy change [None]
  - Upper-airway cough syndrome [None]
  - Sinus congestion [None]
  - Sinusitis [None]
  - Face oedema [None]
  - Oedema peripheral [None]

NARRATIVE: CASE EVENT DATE: 20240123
